FAERS Safety Report 9717729 (Version 2)
Quarter: 2013Q4

REPORT INFORMATION
  Report Type: Spontaneous
  Country: US (occurrence: US)
  Receive Date: 20131127
  Receipt Date: 20131127
  Transmission Date: 20140711
  Serious: Yes (Hospitalization, Other)
  Sender: FDA-Public Use
  Company Number: US-ASTRAZENECA-2013SE65716

PATIENT
  Age: 68 Year
  Sex: Female
  Weight: 77.1 kg

DRUGS (4)
  1. SEROQUEL [Suspect]
     Indication: MAJOR DEPRESSION
     Dosage: 200 TO 300 MG,AT NIGHT
     Route: 048
     Dates: start: 200909, end: 201305
  2. KLONOPIN [Concomitant]
     Indication: INSOMNIA
     Dates: start: 2010
  3. KLONOPIN [Concomitant]
     Indication: ANXIETY
     Dates: start: 2010
  4. THYROID HORMONE [Concomitant]

REACTIONS (8)
  - Type 1 diabetes mellitus [Unknown]
  - Diabetic ketoacidosis [Unknown]
  - Dehydration [Unknown]
  - Hyperglycaemia [Unknown]
  - Latent autoimmune diabetes in adults [Unknown]
  - Obesity [Unknown]
  - Hyperlipidaemia [Unknown]
  - Weight increased [Unknown]
